FAERS Safety Report 13238740 (Version 1)
Quarter: 2017Q1

REPORT INFORMATION
  Report Type: Spontaneous
  Country: US (occurrence: US)
  Receive Date: 20170216
  Receipt Date: 20170216
  Transmission Date: 20170428
  Serious: Yes (Other)
  Sender: FDA-Public Use
  Company Number: US-CLINIGEN GROUP PLC/ CLINIGEN HEALTHCARE LTD-E2B_00001831

PATIENT
  Age: 72 Year
  Sex: Male
  Weight: 78 kg

DRUGS (116)
  1. CISPLATIN. [Suspect]
     Active Substance: CISPLATIN
     Indication: MALIGNANT RESPIRATORY TRACT NEOPLASM
     Dosage: 190 MG* 6 CYCLE(S)
     Route: 042
     Dates: start: 19960301, end: 19960807
  2. CISPLATIN. [Suspect]
     Active Substance: CISPLATIN
     Indication: MALIGNANT RESPIRATORY TRACT NEOPLASM
     Dosage: 190 MG* 6 CYCLE(S)
     Route: 042
     Dates: start: 19960301, end: 19960807
  3. CISPLATIN. [Suspect]
     Active Substance: CISPLATIN
     Indication: MALIGNANT RESPIRATORY TRACT NEOPLASM
     Dosage: 190 MG 1ST CYCLE(S)
     Route: 042
     Dates: start: 19960301, end: 19960301
  4. CISPLATIN. [Suspect]
     Active Substance: CISPLATIN
     Indication: MALIGNANT RESPIRATORY TRACT NEOPLASM
     Dosage: 190 MG 2ND CYCLE(S)
     Route: 042
     Dates: start: 19960328, end: 19960328
  5. CISPLATIN. [Suspect]
     Active Substance: CISPLATIN
     Indication: MALIGNANT RESPIRATORY TRACT NEOPLASM
     Dosage: 190 MG 3RD CYCLE(S)
     Route: 042
     Dates: start: 19960423, end: 19960423
  6. CISPLATIN. [Suspect]
     Active Substance: CISPLATIN
     Indication: MALIGNANT RESPIRATORY TRACT NEOPLASM
     Dosage: 190 MG 4TH CYCLE(S)
     Route: 042
     Dates: start: 19960620, end: 19960620
  7. CISPLATIN. [Suspect]
     Active Substance: CISPLATIN
     Indication: MALIGNANT RESPIRATORY TRACT NEOPLASM
     Dosage: 190 MG 4TH CYCLE(S)
     Route: 042
     Dates: start: 19960620, end: 19960620
  8. CISPLATIN. [Suspect]
     Active Substance: CISPLATIN
     Indication: MALIGNANT RESPIRATORY TRACT NEOPLASM
     Dosage: 190 MG 5TH CYCLE(S)
     Route: 042
     Dates: start: 19960718, end: 19960718
  9. CISPLATIN. [Suspect]
     Active Substance: CISPLATIN
     Indication: MALIGNANT RESPIRATORY TRACT NEOPLASM
     Dosage: 190 MG 6TH CYCLE(S)
     Route: 042
     Dates: start: 19960807, end: 19960807
  10. NAVELBINE [Suspect]
     Active Substance: VINORELBINE TARTRATE
     Indication: MALIGNANT RESPIRATORY TRACT NEOPLASM
     Dosage: 50 MG 1 DAY(S)
     Route: 042
     Dates: start: 19960301, end: 19960301
  11. NAVELBINE [Suspect]
     Active Substance: VINORELBINE TARTRATE
     Indication: MALIGNANT RESPIRATORY TRACT NEOPLASM
     Dosage: 50 MG 1 DAY(S)
     Route: 042
     Dates: start: 19960301, end: 19960301
  12. NAVELBINE [Suspect]
     Active Substance: VINORELBINE TARTRATE
     Indication: MALIGNANT RESPIRATORY TRACT NEOPLASM
     Dosage: 25 MG 1 DAY(S)
     Route: 042
     Dates: start: 19960328, end: 19960328
  13. NAVELBINE [Suspect]
     Active Substance: VINORELBINE TARTRATE
     Indication: MALIGNANT RESPIRATORY TRACT NEOPLASM
     Dosage: 25 MG 1 DAY(S)
     Route: 042
     Dates: start: 19960328, end: 19960328
  14. NAVELBINE [Suspect]
     Active Substance: VINORELBINE TARTRATE
     Indication: MALIGNANT RESPIRATORY TRACT NEOPLASM
     Dosage: 25 MG 1 DAY(S)
     Route: 042
     Dates: start: 19960423, end: 19960423
  15. NAVELBINE [Suspect]
     Active Substance: VINORELBINE TARTRATE
     Indication: MALIGNANT RESPIRATORY TRACT NEOPLASM
     Dosage: 25 MG 1 DAY(S)
     Route: 042
     Dates: start: 19960620, end: 19960620
  16. NAVELBINE [Suspect]
     Active Substance: VINORELBINE TARTRATE
     Indication: MALIGNANT RESPIRATORY TRACT NEOPLASM
     Dosage: 25 MG 1 DAY(S)
     Route: 042
     Dates: start: 19960620, end: 19960620
  17. CISPLATIN. [Suspect]
     Active Substance: CISPLATIN
     Indication: MALIGNANT RESPIRATORY TRACT NEOPLASM
     Dosage: 190 MG 1ST CYCLE(S)
     Route: 042
     Dates: start: 19960301, end: 19960301
  18. CISPLATIN. [Suspect]
     Active Substance: CISPLATIN
     Indication: MALIGNANT RESPIRATORY TRACT NEOPLASM
     Dosage: 190 MG 1ST CYCLE(S)
     Route: 042
     Dates: start: 19960301, end: 19960301
  19. CISPLATIN. [Suspect]
     Active Substance: CISPLATIN
     Indication: MALIGNANT RESPIRATORY TRACT NEOPLASM
     Dosage: 190 MG 3RD CYCLE(S)
     Route: 042
     Dates: start: 19960423, end: 19960423
  20. CISPLATIN. [Suspect]
     Active Substance: CISPLATIN
     Indication: MALIGNANT RESPIRATORY TRACT NEOPLASM
     Dosage: 190 MG 3RD CYCLE(S)
     Route: 042
     Dates: start: 19960423, end: 19960423
  21. CISPLATIN. [Suspect]
     Active Substance: CISPLATIN
     Indication: MALIGNANT RESPIRATORY TRACT NEOPLASM
     Dosage: 190 MG 4TH CYCLE(S)
     Route: 042
     Dates: start: 19960620, end: 19960620
  22. NAVELBINE [Suspect]
     Active Substance: VINORELBINE TARTRATE
     Indication: MALIGNANT RESPIRATORY TRACT NEOPLASM
     Dosage: 50 MG-25 MG* 5 MONTH(S)
     Route: 042
     Dates: start: 19960301, end: 19960807
  23. NAVELBINE [Suspect]
     Active Substance: VINORELBINE TARTRATE
     Indication: MALIGNANT RESPIRATORY TRACT NEOPLASM
     Dosage: 50 MG-25 MG* 5 MONTH(S)
     Route: 042
     Dates: start: 19960301, end: 19960807
  24. NAVELBINE [Suspect]
     Active Substance: VINORELBINE TARTRATE
     Indication: MALIGNANT RESPIRATORY TRACT NEOPLASM
     Dosage: 50 MG-25 MG* 5 MONTH(S)
     Route: 042
     Dates: start: 19960301, end: 19960807
  25. NAVELBINE [Suspect]
     Active Substance: VINORELBINE TARTRATE
     Indication: MALIGNANT RESPIRATORY TRACT NEOPLASM
     Dosage: 50MGWKLY/3WKS 3 WEEK(S)
     Route: 042
     Dates: start: 1996, end: 1996
  26. NAVELBINE [Suspect]
     Active Substance: VINORELBINE TARTRATE
     Indication: MALIGNANT RESPIRATORY TRACT NEOPLASM
     Dosage: 50MGWKLY/3WKS 3 WEEK(S)
     Route: 042
     Dates: start: 1996, end: 1996
  27. NAVELBINE [Suspect]
     Active Substance: VINORELBINE TARTRATE
     Indication: MALIGNANT RESPIRATORY TRACT NEOPLASM
     Dosage: 25 MG 1 DAY(S)
     Route: 042
     Dates: start: 19960620, end: 19960620
  28. NAVELBINE [Suspect]
     Active Substance: VINORELBINE TARTRATE
     Indication: MALIGNANT RESPIRATORY TRACT NEOPLASM
     Dosage: 25 MG 1 DAY(S)
     Route: 042
     Dates: start: 19960620, end: 19960620
  29. NAVELBINE [Suspect]
     Active Substance: VINORELBINE TARTRATE
     Indication: MALIGNANT RESPIRATORY TRACT NEOPLASM
     Dosage: 25 MG 1 DAY(S)
     Route: 042
     Dates: start: 19960620, end: 19960620
  30. NAVELBINE [Suspect]
     Active Substance: VINORELBINE TARTRATE
     Indication: MALIGNANT RESPIRATORY TRACT NEOPLASM
     Dosage: 25 MG 1 DAY(S)
     Route: 042
     Dates: start: 19960807, end: 19960807
  31. CISPLATIN. [Suspect]
     Active Substance: CISPLATIN
     Indication: MALIGNANT RESPIRATORY TRACT NEOPLASM
     Dosage: 190 MG 2ND CYCLE(S)
     Route: 042
     Dates: start: 19960328, end: 19960328
  32. CISPLATIN. [Suspect]
     Active Substance: CISPLATIN
     Indication: MALIGNANT RESPIRATORY TRACT NEOPLASM
     Dosage: 190 MG 3RD CYCLE(S)
     Route: 042
     Dates: start: 19960423, end: 19960423
  33. CISPLATIN. [Suspect]
     Active Substance: CISPLATIN
     Indication: MALIGNANT RESPIRATORY TRACT NEOPLASM
     Dosage: 190 MG 4TH CYCLE(S)
     Route: 042
     Dates: start: 19960620, end: 19960620
  34. CISPLATIN. [Suspect]
     Active Substance: CISPLATIN
     Indication: MALIGNANT RESPIRATORY TRACT NEOPLASM
     Dosage: 190 MG 6TH CYCLE(S)
     Route: 042
     Dates: start: 19960807, end: 19960807
  35. NAVELBINE [Suspect]
     Active Substance: VINORELBINE TARTRATE
     Indication: MALIGNANT RESPIRATORY TRACT NEOPLASM
     Dosage: 50 MG 1 DAY(S)
     Route: 042
     Dates: start: 19960301, end: 19960301
  36. NAVELBINE [Suspect]
     Active Substance: VINORELBINE TARTRATE
     Indication: MALIGNANT RESPIRATORY TRACT NEOPLASM
     Dosage: 50 MG 1 DAY(S)
     Route: 042
     Dates: start: 19960301, end: 19960301
  37. NAVELBINE [Suspect]
     Active Substance: VINORELBINE TARTRATE
     Indication: MALIGNANT RESPIRATORY TRACT NEOPLASM
     Dosage: 50 MG 1 DAY(S)
     Route: 042
     Dates: start: 19960301, end: 19960301
  38. NAVELBINE [Suspect]
     Active Substance: VINORELBINE TARTRATE
     Indication: MALIGNANT RESPIRATORY TRACT NEOPLASM
     Dosage: 25 MG 1 DAY(S)
     Route: 042
     Dates: start: 19960718, end: 19960718
  39. NAVELBINE [Suspect]
     Active Substance: VINORELBINE TARTRATE
     Indication: MALIGNANT RESPIRATORY TRACT NEOPLASM
     Dosage: 25 MG 1 DAY(S)
     Route: 042
     Dates: start: 19960807, end: 19960807
  40. NAVELBINE [Suspect]
     Active Substance: VINORELBINE TARTRATE
     Indication: MALIGNANT RESPIRATORY TRACT NEOPLASM
     Dosage: 25 MG 1 DAY(S)
     Route: 042
     Dates: start: 19960807, end: 19960807
  41. NAVELBINE [Suspect]
     Active Substance: VINORELBINE TARTRATE
     Indication: MALIGNANT RESPIRATORY TRACT NEOPLASM
     Dosage: 25 MG 1 DAY(S)
     Route: 042
     Dates: start: 19960807, end: 19960807
  42. CISPLATIN. [Suspect]
     Active Substance: CISPLATIN
     Indication: MALIGNANT RESPIRATORY TRACT NEOPLASM
     Dosage: 190 MG* 6 CYCLE(S)
     Route: 042
     Dates: start: 19960301, end: 19960807
  43. CISPLATIN. [Suspect]
     Active Substance: CISPLATIN
     Indication: MALIGNANT RESPIRATORY TRACT NEOPLASM
     Dosage: 190 MG 1ST CYCLE(S)
     Route: 042
     Dates: start: 19960301, end: 19960301
  44. CISPLATIN. [Suspect]
     Active Substance: CISPLATIN
     Indication: MALIGNANT RESPIRATORY TRACT NEOPLASM
     Dosage: 190 MG 2ND CYCLE(S)
     Route: 042
     Dates: start: 19960328, end: 19960328
  45. CISPLATIN. [Suspect]
     Active Substance: CISPLATIN
     Indication: MALIGNANT RESPIRATORY TRACT NEOPLASM
     Dosage: 190 MG 3RD CYCLE(S)
     Route: 042
     Dates: start: 19960423, end: 19960423
  46. CISPLATIN. [Suspect]
     Active Substance: CISPLATIN
     Indication: MALIGNANT RESPIRATORY TRACT NEOPLASM
     Dosage: 190 MG 4TH CYCLE(S)
     Route: 042
     Dates: start: 19960620, end: 19960620
  47. CISPLATIN. [Suspect]
     Active Substance: CISPLATIN
     Indication: MALIGNANT RESPIRATORY TRACT NEOPLASM
     Dosage: 190 MG 5TH CYCLE(S)
     Route: 042
     Dates: start: 19960718, end: 19960718
  48. CISPLATIN. [Suspect]
     Active Substance: CISPLATIN
     Indication: MALIGNANT RESPIRATORY TRACT NEOPLASM
     Dosage: 190 MG 6TH CYCLE(S)
     Route: 042
     Dates: start: 19960807, end: 19960807
  49. CISPLATIN. [Suspect]
     Active Substance: CISPLATIN
     Indication: MALIGNANT RESPIRATORY TRACT NEOPLASM
     Dosage: 190 MG 6TH CYCLE(S)
     Route: 042
     Dates: start: 19960807, end: 19960807
  50. NAVELBINE [Suspect]
     Active Substance: VINORELBINE TARTRATE
     Indication: MALIGNANT RESPIRATORY TRACT NEOPLASM
     Dosage: 50 MG 1 DAY(S)
     Route: 042
     Dates: start: 19960301, end: 19960301
  51. NAVELBINE [Suspect]
     Active Substance: VINORELBINE TARTRATE
     Indication: MALIGNANT RESPIRATORY TRACT NEOPLASM
     Dosage: 50MGWKLY/3WKS 3 WEEK(S)
     Route: 042
     Dates: start: 1996, end: 1996
  52. NAVELBINE [Suspect]
     Active Substance: VINORELBINE TARTRATE
     Indication: MALIGNANT RESPIRATORY TRACT NEOPLASM
     Dosage: 50MGWKLY/3WKS 3 WEEK(S)
     Route: 042
     Dates: start: 1996, end: 1996
  53. NAVELBINE [Suspect]
     Active Substance: VINORELBINE TARTRATE
     Indication: MALIGNANT RESPIRATORY TRACT NEOPLASM
     Dosage: 25 MG 1 DAY(S)
     Route: 042
     Dates: start: 19960328, end: 19960328
  54. NAVELBINE [Suspect]
     Active Substance: VINORELBINE TARTRATE
     Indication: MALIGNANT RESPIRATORY TRACT NEOPLASM
     Dosage: 25 MG 1 DAY(S)
     Route: 042
     Dates: start: 19960423, end: 19960423
  55. NAVELBINE [Suspect]
     Active Substance: VINORELBINE TARTRATE
     Indication: MALIGNANT RESPIRATORY TRACT NEOPLASM
     Dosage: 25 MG 1 DAY(S)
     Route: 042
     Dates: start: 19960423, end: 19960423
  56. NAVELBINE [Suspect]
     Active Substance: VINORELBINE TARTRATE
     Indication: MALIGNANT RESPIRATORY TRACT NEOPLASM
     Dosage: 25 MG 1 DAY(S)
     Route: 042
     Dates: start: 19960423, end: 19960423
  57. NAVELBINE [Suspect]
     Active Substance: VINORELBINE TARTRATE
     Indication: MALIGNANT RESPIRATORY TRACT NEOPLASM
     Dosage: 25 MG 1 DAY(S)
     Route: 042
     Dates: start: 19960620, end: 19960620
  58. NAVELBINE [Suspect]
     Active Substance: VINORELBINE TARTRATE
     Indication: MALIGNANT RESPIRATORY TRACT NEOPLASM
     Dosage: 25 MG 1 DAY(S)
     Route: 042
     Dates: start: 19960718, end: 19960718
  59. NAVELBINE [Suspect]
     Active Substance: VINORELBINE TARTRATE
     Indication: MALIGNANT RESPIRATORY TRACT NEOPLASM
     Dosage: 25 MG 1 DAY(S)
     Route: 042
     Dates: start: 19960718, end: 19960718
  60. NAVELBINE [Suspect]
     Active Substance: VINORELBINE TARTRATE
     Indication: MALIGNANT RESPIRATORY TRACT NEOPLASM
     Dosage: 25 MG 1 DAY(S)
     Route: 042
     Dates: start: 19960718, end: 19960718
  61. NAVELBINE [Suspect]
     Active Substance: VINORELBINE TARTRATE
     Indication: MALIGNANT RESPIRATORY TRACT NEOPLASM
     Dosage: 25 MG 1 DAY(S)
     Route: 042
     Dates: start: 19960718, end: 19960718
  62. DECADRON [Concomitant]
     Active Substance: DEXAMETHASONE
     Dosage: 20 MG 1 DAY(S)
     Route: 042
     Dates: start: 19960807, end: 19960807
  63. CISPLATIN. [Suspect]
     Active Substance: CISPLATIN
     Indication: MALIGNANT RESPIRATORY TRACT NEOPLASM
     Dosage: 190 MG* 6 CYCLE(S)
     Route: 042
     Dates: start: 19960301, end: 19960807
  64. CISPLATIN. [Suspect]
     Active Substance: CISPLATIN
     Indication: MALIGNANT RESPIRATORY TRACT NEOPLASM
     Dosage: 190 MG 1ST CYCLE(S)
     Route: 042
     Dates: start: 19960301, end: 19960301
  65. CISPLATIN. [Suspect]
     Active Substance: CISPLATIN
     Indication: MALIGNANT RESPIRATORY TRACT NEOPLASM
     Dosage: 190 MG 2ND CYCLE(S)
     Route: 042
     Dates: start: 19960328, end: 19960328
  66. CISPLATIN. [Suspect]
     Active Substance: CISPLATIN
     Indication: MALIGNANT RESPIRATORY TRACT NEOPLASM
     Dosage: 190 MG 3RD CYCLE(S)
     Route: 042
     Dates: start: 19960423, end: 19960423
  67. CISPLATIN. [Suspect]
     Active Substance: CISPLATIN
     Indication: MALIGNANT RESPIRATORY TRACT NEOPLASM
     Dosage: 190 MG 4TH CYCLE(S)
     Route: 042
     Dates: start: 19960620, end: 19960620
  68. NAVELBINE [Suspect]
     Active Substance: VINORELBINE TARTRATE
     Indication: MALIGNANT RESPIRATORY TRACT NEOPLASM
     Dosage: 50MGWKLY/3WKS 3 WEEK(S)
     Route: 042
     Dates: start: 1996, end: 1996
  69. NAVELBINE [Suspect]
     Active Substance: VINORELBINE TARTRATE
     Indication: MALIGNANT RESPIRATORY TRACT NEOPLASM
     Dosage: 25 MG 1 DAY(S)
     Route: 042
     Dates: start: 19960328, end: 19960328
  70. NAVELBINE [Suspect]
     Active Substance: VINORELBINE TARTRATE
     Indication: MALIGNANT RESPIRATORY TRACT NEOPLASM
     Dosage: 25 MG 1 DAY(S)
     Route: 042
     Dates: start: 19960328, end: 19960328
  71. NAVELBINE [Suspect]
     Active Substance: VINORELBINE TARTRATE
     Indication: MALIGNANT RESPIRATORY TRACT NEOPLASM
     Dosage: 25 MG 1 DAY(S)
     Route: 042
     Dates: start: 19960423, end: 19960423
  72. NAVELBINE [Suspect]
     Active Substance: VINORELBINE TARTRATE
     Indication: MALIGNANT RESPIRATORY TRACT NEOPLASM
     Dosage: 25 MG 1 DAY(S)
     Route: 042
     Dates: start: 19960718, end: 19960718
  73. NAVELBINE [Suspect]
     Active Substance: VINORELBINE TARTRATE
     Indication: MALIGNANT RESPIRATORY TRACT NEOPLASM
     Dosage: 25 MG 1 DAY(S)
     Route: 042
     Dates: start: 19960718, end: 19960718
  74. NAVELBINE [Suspect]
     Active Substance: VINORELBINE TARTRATE
     Indication: MALIGNANT RESPIRATORY TRACT NEOPLASM
     Dosage: 25 MG 1 DAY(S)
     Route: 042
     Dates: start: 19960718, end: 19960718
  75. CISPLATIN. [Suspect]
     Active Substance: CISPLATIN
     Indication: MALIGNANT RESPIRATORY TRACT NEOPLASM
     Dosage: 190 MG* 6 CYCLE(S)
     Route: 042
     Dates: start: 19960301, end: 19960807
  76. CISPLATIN. [Suspect]
     Active Substance: CISPLATIN
     Indication: MALIGNANT RESPIRATORY TRACT NEOPLASM
     Dosage: 190 MG 1ST CYCLE(S)
     Route: 042
     Dates: start: 19960301, end: 19960301
  77. CISPLATIN. [Suspect]
     Active Substance: CISPLATIN
     Indication: MALIGNANT RESPIRATORY TRACT NEOPLASM
     Dosage: 190 MG 5TH CYCLE(S)
     Route: 042
     Dates: start: 19960718, end: 19960718
  78. NAVELBINE [Suspect]
     Active Substance: VINORELBINE TARTRATE
     Indication: MALIGNANT RESPIRATORY TRACT NEOPLASM
     Dosage: 50 MG-25 MG* 5 MONTH(S)
     Route: 042
     Dates: start: 19960301, end: 19960807
  79. NAVELBINE [Suspect]
     Active Substance: VINORELBINE TARTRATE
     Indication: MALIGNANT RESPIRATORY TRACT NEOPLASM
     Dosage: 50 MG-25 MG* 5 MONTH(S)
     Route: 042
     Dates: start: 19960301, end: 19960807
  80. NAVELBINE [Suspect]
     Active Substance: VINORELBINE TARTRATE
     Indication: MALIGNANT RESPIRATORY TRACT NEOPLASM
     Dosage: 50 MG-25 MG* 5 MONTH(S)
     Route: 042
     Dates: start: 19960301, end: 19960807
  81. NAVELBINE [Suspect]
     Active Substance: VINORELBINE TARTRATE
     Indication: MALIGNANT RESPIRATORY TRACT NEOPLASM
     Dosage: 50MGWKLY/3WKS 3 WEEK(S)
     Route: 042
     Dates: start: 1996, end: 1996
  82. NAVELBINE [Suspect]
     Active Substance: VINORELBINE TARTRATE
     Indication: MALIGNANT RESPIRATORY TRACT NEOPLASM
     Dosage: 25 MG 1 DAY(S)
     Route: 042
     Dates: start: 19960328, end: 19960328
  83. ETHYOL [Suspect]
     Active Substance: AMIFOSTINE
     Indication: ADVERSE DRUG REACTION
     Dosage: 740 MG/M2 IV 1 CYCLE(S)
     Route: 042
     Dates: start: 19960807, end: 19960807
  84. CISPLATIN. [Suspect]
     Active Substance: CISPLATIN
     Indication: MALIGNANT RESPIRATORY TRACT NEOPLASM
     Dosage: 190 MG* 6 CYCLE(S)
     Route: 042
     Dates: start: 19960301, end: 19960807
  85. CISPLATIN. [Suspect]
     Active Substance: CISPLATIN
     Indication: MALIGNANT RESPIRATORY TRACT NEOPLASM
     Dosage: 190 MG* 6 CYCLE(S)
     Route: 042
     Dates: start: 19960301, end: 19960807
  86. CISPLATIN. [Suspect]
     Active Substance: CISPLATIN
     Indication: MALIGNANT RESPIRATORY TRACT NEOPLASM
     Dosage: 190 MG 2ND CYCLE(S)
     Route: 042
     Dates: start: 19960328, end: 19960328
  87. CISPLATIN. [Suspect]
     Active Substance: CISPLATIN
     Indication: MALIGNANT RESPIRATORY TRACT NEOPLASM
     Dosage: 190 MG 2ND CYCLE(S)
     Route: 042
     Dates: start: 19960328, end: 19960328
  88. CISPLATIN. [Suspect]
     Active Substance: CISPLATIN
     Indication: MALIGNANT RESPIRATORY TRACT NEOPLASM
     Dosage: 190 MG 3RD CYCLE(S)
     Route: 042
     Dates: start: 19960423, end: 19960423
  89. CISPLATIN. [Suspect]
     Active Substance: CISPLATIN
     Indication: MALIGNANT RESPIRATORY TRACT NEOPLASM
     Dosage: 190 MG 5TH CYCLE(S)
     Route: 042
     Dates: start: 19960718, end: 19960718
  90. CISPLATIN. [Suspect]
     Active Substance: CISPLATIN
     Indication: MALIGNANT RESPIRATORY TRACT NEOPLASM
     Dosage: 190 MG 5TH CYCLE(S)
     Route: 042
     Dates: start: 19960718, end: 19960718
  91. CISPLATIN. [Suspect]
     Active Substance: CISPLATIN
     Indication: MALIGNANT RESPIRATORY TRACT NEOPLASM
     Dosage: 190 MG 6TH CYCLE(S)
     Route: 042
     Dates: start: 19960807, end: 19960807
  92. CISPLATIN. [Suspect]
     Active Substance: CISPLATIN
     Indication: MALIGNANT RESPIRATORY TRACT NEOPLASM
     Dosage: 190 MG 6TH CYCLE(S)
     Route: 042
     Dates: start: 19960807, end: 19960807
  93. NAVELBINE [Suspect]
     Active Substance: VINORELBINE TARTRATE
     Indication: MALIGNANT RESPIRATORY TRACT NEOPLASM
     Dosage: 50 MG-25 MG* 5 MONTH(S)
     Route: 042
     Dates: start: 19960301, end: 19960807
  94. NAVELBINE [Suspect]
     Active Substance: VINORELBINE TARTRATE
     Indication: MALIGNANT RESPIRATORY TRACT NEOPLASM
     Dosage: 50 MG 1 DAY(S)
     Route: 042
     Dates: start: 19960301, end: 19960301
  95. NAVELBINE [Suspect]
     Active Substance: VINORELBINE TARTRATE
     Indication: MALIGNANT RESPIRATORY TRACT NEOPLASM
     Dosage: 25 MG 1 DAY(S)
     Route: 042
     Dates: start: 19960423, end: 19960423
  96. NAVELBINE [Suspect]
     Active Substance: VINORELBINE TARTRATE
     Indication: MALIGNANT RESPIRATORY TRACT NEOPLASM
     Dosage: 25 MG 1 DAY(S)
     Route: 042
     Dates: start: 19960620, end: 19960620
  97. NAVELBINE [Suspect]
     Active Substance: VINORELBINE TARTRATE
     Indication: MALIGNANT RESPIRATORY TRACT NEOPLASM
     Dosage: 25 MG 1 DAY(S)
     Route: 042
     Dates: start: 19960807, end: 19960807
  98. NAVELBINE [Suspect]
     Active Substance: VINORELBINE TARTRATE
     Indication: MALIGNANT RESPIRATORY TRACT NEOPLASM
     Dosage: 25 MG 1 DAY(S)
     Route: 042
     Dates: start: 19960807, end: 19960807
  99. KYTRIL [Concomitant]
     Active Substance: GRANISETRON HYDROCHLORIDE
     Dosage: 0.8 MG 1 DAY(S)
     Route: 042
     Dates: start: 19960807, end: 19960807
  100. CISPLATIN. [Suspect]
     Active Substance: CISPLATIN
     Indication: MALIGNANT RESPIRATORY TRACT NEOPLASM
     Dosage: 190 MG 1ST CYCLE(S)
     Route: 042
     Dates: start: 19960301, end: 19960301
  101. CISPLATIN. [Suspect]
     Active Substance: CISPLATIN
     Indication: MALIGNANT RESPIRATORY TRACT NEOPLASM
     Dosage: 190 MG 2ND CYCLE(S)
     Route: 042
     Dates: start: 19960328, end: 19960328
  102. CISPLATIN. [Suspect]
     Active Substance: CISPLATIN
     Indication: MALIGNANT RESPIRATORY TRACT NEOPLASM
     Dosage: 190 MG 4TH CYCLE(S)
     Route: 042
     Dates: start: 19960620, end: 19960620
  103. CISPLATIN. [Suspect]
     Active Substance: CISPLATIN
     Indication: MALIGNANT RESPIRATORY TRACT NEOPLASM
     Dosage: 190 MG 5TH CYCLE(S)
     Route: 042
     Dates: start: 19960718, end: 19960718
  104. CISPLATIN. [Suspect]
     Active Substance: CISPLATIN
     Indication: MALIGNANT RESPIRATORY TRACT NEOPLASM
     Dosage: 190 MG 5TH CYCLE(S)
     Route: 042
     Dates: start: 19960718, end: 19960718
  105. CISPLATIN. [Suspect]
     Active Substance: CISPLATIN
     Indication: MALIGNANT RESPIRATORY TRACT NEOPLASM
     Dosage: 190 MG 6TH CYCLE(S)
     Route: 042
     Dates: start: 19960807, end: 19960807
  106. NAVELBINE [Suspect]
     Active Substance: VINORELBINE TARTRATE
     Indication: MALIGNANT RESPIRATORY TRACT NEOPLASM
     Dosage: 50 MG-25 MG* 5 MONTH(S)
     Route: 042
     Dates: start: 19960301, end: 19960807
  107. NAVELBINE [Suspect]
     Active Substance: VINORELBINE TARTRATE
     Indication: MALIGNANT RESPIRATORY TRACT NEOPLASM
     Dosage: 50 MG 1 DAY(S)
     Route: 042
     Dates: start: 19960301, end: 19960301
  108. NAVELBINE [Suspect]
     Active Substance: VINORELBINE TARTRATE
     Indication: MALIGNANT RESPIRATORY TRACT NEOPLASM
     Dosage: 50MGWKLY/3WKS 3 WEEK(S)
     Route: 042
     Dates: start: 1996, end: 1996
  109. NAVELBINE [Suspect]
     Active Substance: VINORELBINE TARTRATE
     Indication: MALIGNANT RESPIRATORY TRACT NEOPLASM
     Dosage: 50MGWKLY/3WKS 3 WEEK(S)
     Route: 042
     Dates: start: 1996, end: 1996
  110. NAVELBINE [Suspect]
     Active Substance: VINORELBINE TARTRATE
     Indication: MALIGNANT RESPIRATORY TRACT NEOPLASM
     Dosage: 25 MG 1 DAY(S)
     Route: 042
     Dates: start: 19960328, end: 19960328
  111. NAVELBINE [Suspect]
     Active Substance: VINORELBINE TARTRATE
     Indication: MALIGNANT RESPIRATORY TRACT NEOPLASM
     Dosage: 25 MG 1 DAY(S)
     Route: 042
     Dates: start: 19960328, end: 19960328
  112. NAVELBINE [Suspect]
     Active Substance: VINORELBINE TARTRATE
     Indication: MALIGNANT RESPIRATORY TRACT NEOPLASM
     Dosage: 25 MG 1 DAY(S)
     Route: 042
     Dates: start: 19960423, end: 19960423
  113. NAVELBINE [Suspect]
     Active Substance: VINORELBINE TARTRATE
     Indication: MALIGNANT RESPIRATORY TRACT NEOPLASM
     Dosage: 25 MG 1 DAY(S)
     Route: 042
     Dates: start: 19960423, end: 19960423
  114. NAVELBINE [Suspect]
     Active Substance: VINORELBINE TARTRATE
     Indication: MALIGNANT RESPIRATORY TRACT NEOPLASM
     Dosage: 25 MG 1 DAY(S)
     Route: 042
     Dates: start: 19960620, end: 19960620
  115. NAVELBINE [Suspect]
     Active Substance: VINORELBINE TARTRATE
     Indication: MALIGNANT RESPIRATORY TRACT NEOPLASM
     Dosage: 25 MG 1 DAY(S)
     Route: 042
     Dates: start: 19960807, end: 19960807
  116. NAVELBINE [Suspect]
     Active Substance: VINORELBINE TARTRATE
     Indication: MALIGNANT RESPIRATORY TRACT NEOPLASM
     Dosage: 25 MG 1 DAY(S)
     Route: 042
     Dates: start: 19960807, end: 19960807

REACTIONS (4)
  - Agitation [Unknown]
  - Sneezing [Unknown]
  - Confusional state [Unknown]
  - Seizure [Recovered/Resolved]

NARRATIVE: CASE EVENT DATE: 19960807
